FAERS Safety Report 14606149 (Version 2)
Quarter: 2018Q2

REPORT INFORMATION
  Report Type: Spontaneous
  Country: US (occurrence: US)
  Receive Date: 20180307
  Receipt Date: 20180410
  Transmission Date: 20180711
  Serious: Yes (Hospitalization)
  Sender: FDA-Public Use
  Company Number: US-ELI_LILLY_AND_COMPANY-US201803000993

PATIENT
  Sex: Female

DRUGS (2)
  1. FORTEO [Suspect]
     Active Substance: TERIPARATIDE
     Indication: OSTEOPOROSIS
     Dosage: 20 UG, UNKNOWN
     Route: 058
  2. FORTEO [Suspect]
     Active Substance: TERIPARATIDE
     Dosage: 20 UG, UNKNOWN
     Route: 058
     Dates: start: 20171128, end: 20180228

REACTIONS (12)
  - Gingival pain [Not Recovered/Not Resolved]
  - Mass [Not Recovered/Not Resolved]
  - Nausea [Not Recovered/Not Resolved]
  - Dysphagia [Recovered/Resolved]
  - Pharyngeal oedema [Recovered/Resolved]
  - Abdominal pain upper [Not Recovered/Not Resolved]
  - Hypoaesthesia oral [Not Recovered/Not Resolved]
  - Headache [Not Recovered/Not Resolved]
  - Chapped lips [Not Recovered/Not Resolved]
  - Throat tightness [Not Recovered/Not Resolved]
  - Toothache [Not Recovered/Not Resolved]
  - Bone pain [Not Recovered/Not Resolved]
